FAERS Safety Report 10176979 (Version 1)
Quarter: 2014Q2

REPORT INFORMATION
  Report Type: Spontaneous
  Country: US (occurrence: US)
  Receive Date: 20140516
  Receipt Date: 20140516
  Transmission Date: 20141212
  Serious: Yes (Other)
  Sender: FDA-Public Use
  Company Number: US-ELI_LILLY_AND_COMPANY-US201405001642

PATIENT
  Age: 41 Year
  Sex: Male

DRUGS (8)
  1. HUMALOG 25% LISPRO, 75% NPL [Suspect]
     Indication: DIABETES MELLITUS
     Dosage: 60 U, EACH MORNING
     Route: 065
  2. HUMALOG 25% LISPRO, 75% NPL [Suspect]
     Dosage: 20 U, QD
     Route: 065
  3. HUMALOG 25% LISPRO, 75% NPL [Suspect]
     Dosage: 15 U, EACH EVENING
     Route: 065
  4. GLIMEPIRIDE [Concomitant]
  5. PIOGLITAZONE [Concomitant]
  6. COREG [Concomitant]
  7. ASPIRIN [Concomitant]
  8. FENOFIBRATE [Concomitant]

REACTIONS (5)
  - Throat tightness [Recovered/Resolved]
  - Respiration abnormal [Recovered/Resolved]
  - Palpitations [Recovered/Resolved]
  - Erythema [Recovered/Resolved]
  - Product taste abnormal [Recovered/Resolved]
